FAERS Safety Report 24133909 (Version 3)
Quarter: 2024Q3

REPORT INFORMATION
  Report Type: Spontaneous
  Country: US (occurrence: US)
  Receive Date: 20240724
  Receipt Date: 20240808
  Transmission Date: 20241017
  Serious: No
  Sender: AMGEN
  Company Number: US-AMGEN-USASP2024145744

PATIENT
  Age: 47 Year
  Sex: Female

DRUGS (1)
  1. ENBREL [Suspect]
     Active Substance: BENZYL ALCOHOL\ETANERCEPT
     Indication: Ankylosing spondylitis
     Dosage: 50 MILLIGRAM, QWK
     Route: 058
     Dates: start: 202406

REACTIONS (4)
  - Accidental exposure to product [Unknown]
  - Incorrect dose administered by product [Unknown]
  - Incorrect product administration duration [Unknown]
  - Device use error [Unknown]

NARRATIVE: CASE EVENT DATE: 20240101
